FAERS Safety Report 8152048-1 (Version None)
Quarter: 2012Q1

REPORT INFORMATION
  Report Type: 
  Country: None (occurrence: None)
  Receive Date: 20120214
  Receipt Date: 20120203
  Transmission Date: 20120608
  Serious: Yes (Other)
  Sender: FDA-Public Use
  Company Number: 2012MA001833

PATIENT
  Age: 35 Year
  Sex: Female

DRUGS (2)
  1. PRAZEPAM [Concomitant]
  2. VENLAFAXINE HCL [Suspect]
     Indication: DEPRESSION
     Dosage: 37.5 MG;PO
     Route: 048
     Dates: start: 20111127, end: 20120125

REACTIONS (5)
  - HEART RATE INCREASED [None]
  - HYPOAESTHESIA [None]
  - DRY MOUTH [None]
  - SENSORY DISTURBANCE [None]
  - GASTRIC DISORDER [None]
